FAERS Safety Report 9880346 (Version 1)
Quarter: 2014Q1

REPORT INFORMATION
  Report Type: Spontaneous
  Country: US (occurrence: None)
  Receive Date: 20140206
  Receipt Date: 20140206
  Transmission Date: 20141002
  Serious: Yes (Disabling)
  Sender: FDA-Public Use
  Company Number: None

PATIENT
  Age: 53 Year
  Sex: Male
  Weight: 63.5 kg

DRUGS (2)
  1. CYMBALTA [Suspect]
     Indication: DEPRESSION
     Dosage: 1 PILL  ONCE DAILY  TAKEN BY MOUTH
     Route: 048
     Dates: start: 20140103, end: 20140120
  2. CYMBALTA [Suspect]
     Indication: ANXIETY
     Dosage: 1 PILL  ONCE DAILY  TAKEN BY MOUTH
     Route: 048
     Dates: start: 20140103, end: 20140120

REACTIONS (14)
  - Drug withdrawal syndrome [None]
  - Anxiety [None]
  - Dizziness [None]
  - Asthenia [None]
  - Confusional state [None]
  - Fatigue [None]
  - Palpitations [None]
  - Myalgia [None]
  - Thirst [None]
  - Depression [None]
  - Insomnia [None]
  - Nightmare [None]
  - Gastritis [None]
  - Fear [None]
